FAERS Safety Report 11636812 (Version 2)
Quarter: 2016Q1

REPORT INFORMATION
  Report Type: Report from Study
  Country: US (occurrence: US)
  Receive Date: 20151016
  Receipt Date: 20160324
  Transmission Date: 20160525
  Serious: Yes (Hospitalization)
  Sender: FDA-Public Use
  Company Number: US-ROCHE-1645122

PATIENT
  Age: 63 Year
  Sex: Female
  Weight: 106.6 kg

DRUGS (7)
  1. PERTUZUMAB [Suspect]
     Active Substance: PERTUZUMAB
     Dosage: MAINTENANCE DOSE, LAST DOSE PRIOR TO SAE: 10/JUL/2015, CYCLE 5: 04/AUG/2015, CYCLE 6:18/SEP/2015
     Route: 042
  2. PERTUZUMAB [Suspect]
     Active Substance: PERTUZUMAB
     Indication: BREAST CANCER
     Dosage: OVER 60 MIN ON DAY 1, LOADING DOSE
     Route: 042
     Dates: start: 20150508, end: 20150508
  3. TRASTUZUMAB [Suspect]
     Active Substance: TRASTUZUMAB
     Indication: BREAST CANCER
     Dosage: OVER 90 MIN ON DAY 1, LOADING DOSE
     Route: 042
     Dates: start: 20150508, end: 20150508
  4. CARBOPLATIN. [Suspect]
     Active Substance: CARBOPLATIN
     Indication: BREAST CANCER
     Dosage: DOSE: AUC=6 MG/ML/MIN, OVER 30-60MIN ON DAY, LAST DOSE PRIOR TO SAE: 10/JUL/2015, CYCLE 5: 04/AUG/20
     Route: 042
     Dates: start: 20150508
  5. LETROZOLE. [Concomitant]
     Active Substance: LETROZOLE
     Route: 065
     Dates: start: 20150515
  6. TRASTUZUMAB [Suspect]
     Active Substance: TRASTUZUMAB
     Dosage: MAINTENANCE DOSE, LAST DOSE PRIOR TO SAE: LAST DOSE PRIOR TO SAE: 10/JUL/2015, CYCLE 5: 04/AUG/2015,
     Route: 042
  7. DOCETAXEL. [Suspect]
     Active Substance: DOCETAXEL
     Indication: BREAST CANCER
     Dosage: OVER 60 MIN ON DAY1 CYCLE 1, LAST DOSE PRIOR TO SAE: 10/JUL/2015, CYCLE 5: 05/AUG/2015, CYCLE 6:18/S
     Route: 042
     Dates: start: 20150508

REACTIONS (6)
  - Syncope [Recovered/Resolved]
  - Diarrhoea [Recovered/Resolved]
  - Nausea [Recovered/Resolved]
  - Acute kidney injury [Recovered/Resolved]
  - Dehydration [Recovered/Resolved]
  - Vomiting [Recovered/Resolved]

NARRATIVE: CASE EVENT DATE: 20150712
